FAERS Safety Report 20852166 (Version 1)
Quarter: 2022Q2

REPORT INFORMATION
  Report Type: Spontaneous
  Country: US (occurrence: US)
  Receive Date: 20220520
  Receipt Date: 20220520
  Transmission Date: 20220721
  Serious: Yes (Hospitalization)
  Sender: FDA-Public Use
  Company Number: US-UROGEN PHARMA LTD.-2022-UGN-000052

PATIENT

DRUGS (5)
  1. JELMYTO [Suspect]
     Active Substance: MITOMYCIN
     Indication: Transitional cell cancer of the renal pelvis and ureter
     Dosage: ONE TIME PER WEEK (INSTILLATION)
     Dates: start: 20220331, end: 20220331
  2. JELMYTO [Suspect]
     Active Substance: MITOMYCIN
     Dosage: ONE TIME PER WEEK (INSTILLATION)
     Dates: start: 20220407, end: 20220407
  3. JELMYTO [Suspect]
     Active Substance: MITOMYCIN
     Dosage: ONE TIME PER WEEK (INSTILLATION)
     Dates: start: 20220414, end: 20220414
  4. JELMYTO [Suspect]
     Active Substance: MITOMYCIN
     Dosage: ONE TIME PER WEEK (INSTILLATION)
     Dates: start: 20220421, end: 20220421
  5. JELMYTO [Suspect]
     Active Substance: MITOMYCIN
     Dosage: EVERY TWO WEEKS (INSTILLATION)
     Dates: start: 20220505, end: 20220505

REACTIONS (1)
  - Adverse event [Unknown]

NARRATIVE: CASE EVENT DATE: 20220501
